FAERS Safety Report 6168814-8 (Version None)
Quarter: 2009Q2

REPORT INFORMATION
  Report Type: 
  Country: None (occurrence: None)
  Receive Date: 20090427
  Receipt Date: 20090420
  Transmission Date: 20091009
  Serious: Yes (Other)
  Sender: FDA-Public Use
  Company Number: GB-TEVA-192533ISR

PATIENT
  Sex: Female
  Weight: 74.83 kg

DRUGS (1)
  1. CABERGOLINE [Suspect]
     Indication: HYPERPROLACTINAEMIA
     Dates: start: 20070906, end: 20081223

REACTIONS (1)
  - PROLONGED LABOUR [None]
